FAERS Safety Report 8857683 (Version 1)
Quarter: 2012Q4

REPORT INFORMATION
  Report Type: 
  Country: ES (occurrence: ES)
  Receive Date: 20121024
  Receipt Date: 20121024
  Transmission Date: 20130627
  Serious: Yes (Hospitalization)
  Sender: FDA-Public Use
  Company Number: PHHY2012ES093157

PATIENT
  Age: 70 Year
  Sex: Female

DRUGS (2)
  1. COPALIA [Suspect]
     Indication: HYPERTENSION
     Dosage: 0.5 DF, daily
     Dates: start: 2011, end: 20111215
  2. COPALIA [Suspect]
     Dosage: 1 DF, daily

REACTIONS (5)
  - Systemic lupus erythematosus [Recovered/Resolved]
  - Pyrexia [Recovered/Resolved]
  - Chills [Recovered/Resolved]
  - Arthralgia [Recovered/Resolved]
  - Urticaria [Recovered/Resolved]
